FAERS Safety Report 5848922-9 (Version None)
Quarter: 2008Q3

REPORT INFORMATION
  Report Type: 
  Country: None (occurrence: None)
  Receive Date: 20080819
  Receipt Date: 20080806
  Transmission Date: 20090109
  Serious: Yes (Hospitalization)
  Sender: FDA-Public Use
  Company Number: PHHY2008CN17089

PATIENT
  Age: 23 Year
  Sex: Male

DRUGS (2)
  1. SEBIVO [Suspect]
     Indication: HEPATITIS B
     Route: 048
  2. INTERFERON [Concomitant]

REACTIONS (1)
  - LACTIC ACIDOSIS [None]
